FAERS Safety Report 8969285 (Version 1)
Quarter: 2012Q4

REPORT INFORMATION
  Report Type: 
  Country: US (occurrence: US)
  Receive Date: 20121218
  Receipt Date: 20121218
  Transmission Date: 20130627
  Serious: No
  Sender: FDA-Public Use
  Company Number: US-009507513-1212USA005112

PATIENT
  Sex: Male

DRUGS (3)
  1. VICTRELIS [Suspect]
     Dosage: UNK, qw
     Route: 048
  2. RIBAVIRIN [Suspect]
     Dosage: UNK, qw
     Route: 048
  3. PEGINTERFERON ALFA-2A [Suspect]
     Dosage: 135 Microgram, qw

REACTIONS (5)
  - Abdominal distension [Unknown]
  - Rhinorrhoea [Unknown]
  - Dyspepsia [Unknown]
  - Weight increased [Unknown]
  - Inappropriate schedule of drug administration [Unknown]
